FAERS Safety Report 13254939 (Version 1)
Quarter: 2017Q1

REPORT INFORMATION
  Report Type: Spontaneous
  Country: US (occurrence: US)
  Receive Date: 20170217
  Receipt Date: 20170217
  Transmission Date: 20170428
  Serious: Yes (Other)
  Sender: FDA-Public Use
  Company Number: None

PATIENT
  Age: 49 Year
  Sex: Female
  Weight: 108 kg

DRUGS (8)
  1. NEURONTIN [Concomitant]
     Active Substance: GABAPENTIN
  2. NORVASC [Concomitant]
     Active Substance: AMLODIPINE BESYLATE
  3. CELEXA [Concomitant]
     Active Substance: CITALOPRAM HYDROBROMIDE
  4. DG HEALTH COLD^N HOT MEDICATED [Suspect]
     Active Substance: MENTHOL
     Indication: BACK PAIN
     Dosage: ?          QUANTITY:1 APPLICATION;?
     Route: 061
     Dates: start: 20140213, end: 20140214
  5. DG HEALTH COLD^N HOT MEDICATED [Suspect]
     Active Substance: MENTHOL
     Indication: INTERVERTEBRAL DISC PROTRUSION
     Dosage: ?          QUANTITY:1 APPLICATION;?
     Route: 061
     Dates: start: 20140213, end: 20140214
  6. AMBIEN [Concomitant]
     Active Substance: ZOLPIDEM TARTRATE
  7. XANAX [Concomitant]
     Active Substance: ALPRAZOLAM
  8. TYLENOL ARTHRITIS PAIN [Concomitant]
     Active Substance: ACETAMINOPHEN

REACTIONS (1)
  - Burns second degree [None]

NARRATIVE: CASE EVENT DATE: 20170213
